FAERS Safety Report 5338434-3 (Version None)
Quarter: 2007Q2

REPORT INFORMATION
  Report Type: 
  Country: None (occurrence: None)
  Receive Date: 20070530
  Receipt Date: 20070525
  Transmission Date: 20071010
  Serious: Yes (Hospitalization, Other)
  Sender: FDA-Public Use
  Company Number: FR-BRISTOL-MYERS SQUIBB COMPANY-13464839

PATIENT
  Age: 60 Year
  Sex: Female

DRUGS (2)
  1. COUMADIN [Suspect]
     Indication: FACTOR V LEIDEN MUTATION
     Dosage: DURATION: A FEW YEARS, INTERRUPTED DUE TO EVENT AND RESTARTED ON 01-AUG-2006
     Route: 048
  2. KARDEGIC [Suspect]
     Indication: FACTOR V LEIDEN MUTATION
     Dosage: DURATION: A FEW YEARS
     Route: 048
     Dates: end: 20060701

REACTIONS (4)
  - ABDOMINAL PAIN [None]
  - ARTERIAL THROMBOSIS [None]
  - COLITIS ISCHAEMIC [None]
  - DIARRHOEA [None]
